FAERS Safety Report 22060873 (Version 1)
Quarter: 2023Q1

REPORT INFORMATION
  Report Type: Spontaneous
  Country: US (occurrence: US)
  Receive Date: 20230303
  Receipt Date: 20230303
  Transmission Date: 20230417
  Serious: No
  Sender: FDA-Public Use
  Company Number: US-EPIHEALTH-2022-US-006378

PATIENT
  Age: 58 Year
  Sex: Female
  Weight: 108.86 kg

DRUGS (1)
  1. RHOFADE [Suspect]
     Active Substance: OXYMETAZOLINE HYDROCHLORIDE
     Indication: Therapeutic skin care topical
     Dosage: APPLY 1 TIME A DAY IN AM
     Route: 061
     Dates: start: 20220310, end: 20220317

REACTIONS (4)
  - Application site acne [Not Recovered/Not Resolved]
  - Application site erythema [Not Recovered/Not Resolved]
  - Application site warmth [Not Recovered/Not Resolved]
  - Condition aggravated [Not Recovered/Not Resolved]

NARRATIVE: CASE EVENT DATE: 20220314
